FAERS Safety Report 8934738 (Version 1)
Quarter: 2012Q4

REPORT INFORMATION
  Report Type: 
  Country: PT (occurrence: PT)
  Receive Date: 20121129
  Receipt Date: 20121129
  Transmission Date: 20130627
  Serious: Yes (Other)
  Sender: FDA-Public Use
  Company Number: PT-WATSON-2012-20702

PATIENT
  Age: 40 Year
  Sex: Male

DRUGS (1)
  1. LIDOCAINE HYDROCHLORIDE 1% WITH EPINEPHRINE (WATSON LABORATORIES) [Suspect]
     Indication: LOCAL ANAESTHESIA
     Dosage: 10 UNK, unknown
     Route: 058

REACTIONS (1)
  - VIIth nerve paralysis [Recovered/Resolved]
